FAERS Safety Report 7564618-X (Version None)
Quarter: 2011Q2

REPORT INFORMATION
  Report Type: 
  Country: None (occurrence: None)
  Receive Date: 20110622
  Receipt Date: 20100802
  Transmission Date: 20111010
  Serious: Yes (Other)
  Sender: FDA-Public Use
  Company Number: US-MYLANLABS-2010S1012391

PATIENT
  Age: 29 Year
  Sex: Female

DRUGS (12)
  1. METFORMIN HCL [Concomitant]
     Route: 048
  2. HYOSCYAMINE [Concomitant]
  3. LOXAPINE HCL [Concomitant]
     Route: 048
  4. PROMETHAZINE [Concomitant]
  5. CLOZAPINE [Suspect]
     Route: 048
     Dates: end: 20100101
  6. CLOZAPINE [Suspect]
     Route: 048
     Dates: end: 20100101
  7. CEPHALEXIN [Concomitant]
     Route: 048
     Dates: start: 20091101
  8. FLUOXETINE HCL [Concomitant]
     Route: 048
  9. LITHIUM [Concomitant]
     Route: 048
  10. BACTROBAN [Concomitant]
  11. LORAZEPAM [Concomitant]
     Route: 048
  12. ALPRAZOLAM [Concomitant]

REACTIONS (2)
  - LEUKOPENIA [None]
  - GRANULOCYTOPENIA [None]
